FAERS Safety Report 16463523 (Version 1)
Quarter: 2019Q2

REPORT INFORMATION
  Report Type: Report from Study
  Country: ES (occurrence: ES)
  Receive Date: 20190621
  Receipt Date: 20190621
  Transmission Date: 20190711
  Serious: Yes (Life-Threatening, Hospitalization)
  Sender: FDA-Public Use
  Company Number: ES-TEVA-2019-ES-1066773

PATIENT
  Age: 73 Year
  Sex: Female

DRUGS (3)
  1. VANCOMICINA [Suspect]
     Active Substance: VANCOMYCIN
     Dosage: 1GR/8H
     Route: 042
     Dates: start: 20170324, end: 20170402
  2. SOLTRIM [Suspect]
     Active Substance: SULFAMETHOXAZOLE\TRIMETHOPRIM
     Dosage: 1-0-1
     Route: 042
     Dates: start: 20170329, end: 20170330
  3. MEROPENEM (7155A) [Suspect]
     Active Substance: MEROPENEM
     Dosage: 1GR/8H
     Route: 042
     Dates: start: 20170324, end: 20170329

REACTIONS (1)
  - Stevens-Johnson syndrome [Recovering/Resolving]

NARRATIVE: CASE EVENT DATE: 20170330
